FAERS Safety Report 6963260-9 (Version None)
Quarter: 2010Q3

REPORT INFORMATION
  Report Type: 
  Country: None (occurrence: None)
  Receive Date: 20100902
  Receipt Date: 20100830
  Transmission Date: 20110219
  Serious: Yes (Other)
  Sender: FDA-Public Use
  Company Number: US-MERCK-1007USA03610

PATIENT
  Sex: Female

DRUGS (2)
  1. JANUVIA [Suspect]
     Route: 048
  2. INSULIN [Concomitant]
     Route: 042

REACTIONS (3)
  - CHOLELITHIASIS [None]
  - LIPASE INCREASED [None]
  - LYMPHOMA [None]
